FAERS Safety Report 25177422 (Version 1)
Quarter: 2025Q2

REPORT INFORMATION
  Report Type: Spontaneous
  Country: US (occurrence: US)
  Receive Date: 20250409
  Receipt Date: 20250409
  Transmission Date: 20250716
  Serious: Yes (Hospitalization, Other)
  Sender: ALEMBIC
  Company Number: US-ALEMBIC-2025SCAL000303

PATIENT

DRUGS (2)
  1. LACOSAMIDE [Suspect]
     Active Substance: LACOSAMIDE
     Indication: Product used for unknown indication
     Route: 065
  2. GABAPENTIN [Suspect]
     Active Substance: GABAPENTIN
     Indication: Product used for unknown indication
     Route: 065

REACTIONS (11)
  - Intentional product use issue [Recovering/Resolving]
  - Mental status changes [Recovering/Resolving]
  - Seizure like phenomena [Recovering/Resolving]
  - Lactic acidosis [Recovering/Resolving]
  - Coma scale abnormal [Recovering/Resolving]
  - Areflexia [Recovering/Resolving]
  - Myoclonus [Recovering/Resolving]
  - Electroencephalogram abnormal [Recovering/Resolving]
  - Ventricular arrhythmia [Recovering/Resolving]
  - Cardiac arrest [Recovering/Resolving]
  - Status epilepticus [Recovering/Resolving]
